FAERS Safety Report 12072772 (Version 1)
Quarter: 2016Q1

REPORT INFORMATION
  Report Type: Spontaneous
  Country: US (occurrence: US)
  Receive Date: 20160212
  Receipt Date: 20160212
  Transmission Date: 20160526
  Serious: Yes (Hospitalization, Other)
  Sender: FDA-Public Use
  Company Number: US-IPCA LABORATORIES LIMITED-IPC201601-000041

PATIENT
  Age: 49 Year
  Sex: Male

DRUGS (6)
  1. AMOXICILLIN-CLAVULANATE [Suspect]
     Active Substance: AMOXICILLIN\CLAVULANIC ACID
     Route: 048
  2. AMPICILLIN-SULBACTUM [Suspect]
     Active Substance: AMPICILLIN SODIUM\SULBACTAM SODIUM
  3. CHLORHEXIDINE [Suspect]
     Active Substance: CHLORHEXIDINE
  4. VANCOMYCIN [Suspect]
     Active Substance: VANCOMYCIN
  5. WARFARIN [Suspect]
     Active Substance: WARFARIN
     Indication: RENAL VEIN THROMBOSIS
  6. SULFAMETHOXAZOLE-TRIMETHOPRIM [Suspect]
     Active Substance: SULFAMETHOXAZOLE\TRIMETHOPRIM

REACTIONS (13)
  - Allodynia [None]
  - Abscess [None]
  - Headache [None]
  - Trismus [None]
  - Haemarthrosis [Unknown]
  - Facial pain [None]
  - Arthritis bacterial [Recovering/Resolving]
  - Road traffic accident [None]
  - Skin abrasion [None]
  - Lymphadenopathy [None]
  - Staphylococcal infection [None]
  - Face oedema [None]
  - Face injury [None]
